FAERS Safety Report 23910365 (Version 1)
Quarter: 2024Q2

REPORT INFORMATION
  Report Type: Spontaneous
  Country: US (occurrence: None)
  Receive Date: 20240525
  Receipt Date: 20240525
  Transmission Date: 20240716
  Serious: Yes (Hospitalization)
  Sender: FDA-Public Use
  Company Number: None

PATIENT
  Age: 55 Year
  Sex: Female

DRUGS (5)
  1. SKYRIZI [Suspect]
     Active Substance: RISANKIZUMAB-RZAA
     Indication: Crohn^s disease
     Dosage: FREQ: INJECT 2.4 ML UNDER THE SKIN (SUBCUTANEOUS INJECTION) VIA QN-BQDY INJECTOR QN THIGH QR ABDOME
     Route: 058
     Dates: start: 20240412
  2. AMITRIPTYLINE [Concomitant]
     Active Substance: AMITRIPTYLINE
  3. AZATHIOPRINE [Concomitant]
     Active Substance: AZATHIOPRINE
  4. BUDESONIDE [Concomitant]
     Active Substance: BUDESONIDE
  5. LOMOTIL [Concomitant]
     Active Substance: ATROPINE SULFATE\DIPHENOXYLATE HYDROCHLORIDE

REACTIONS (2)
  - Quality of life decreased [None]
  - Small intestinal obstruction [None]

NARRATIVE: CASE EVENT DATE: 20240419
